FAERS Safety Report 5157526-5 (Version None)
Quarter: 2006Q4

REPORT INFORMATION
  Report Type: 
  Country: None (occurrence: None)
  Receive Date: 20061127
  Receipt Date: 20061107
  Transmission Date: 20070319
  Serious: Yes (Hospitalization)
  Sender: FDA-Public Use
  Company Number: JP-JPN-A200604779

PATIENT
  Age: 47 Year
  Sex: Male

DRUGS (3)
  1. PAXIL [Suspect]
     Indication: ANXIETY DISORDER
     Route: 048
     Dates: start: 20061026
  2. LENDORMIN [Concomitant]
     Indication: ANXIETY DISORDER
     Dosage: .25MG PER DAY
     Route: 048
     Dates: start: 20061026
  3. REBETOL [Concomitant]
     Indication: HEPATITIS B
     Route: 048
     Dates: start: 20060807

REACTIONS (9)
  - ANXIETY [None]
  - CONVULSION [None]
  - DEPRESSED LEVEL OF CONSCIOUSNESS [None]
  - DIARRHOEA [None]
  - DRUG WITHDRAWAL SYNDROME [None]
  - MYOCLONUS [None]
  - NAUSEA [None]
  - STOMACH DISCOMFORT [None]
  - VOMITING [None]
